FAERS Safety Report 7805979-3 (Version None)
Quarter: 2011Q4

REPORT INFORMATION
  Report Type: 
  Country: None (occurrence: None)
  Receive Date: 20111007
  Receipt Date: 20111007
  Transmission Date: 20120403
  Serious: Yes (Life-Threatening)
  Sender: FDA-Public Use
  Company Number: None

PATIENT
  Sex: Female
  Weight: 64.1 kg

DRUGS (2)
  1. RIFAPENTINE 300MG (3) SANOFI [Suspect]
     Indication: LATENT TUBERCULOSIS
     Dosage: 900 MG ONCE A WEEK BY MOUTH
     Route: 048
     Dates: start: 20110721, end: 20110901
  2. ISONIAZID [Suspect]
     Indication: LATENT TUBERCULOSIS
     Dosage: 900MG ONCE A WEEK BY MOUTH
     Route: 048
     Dates: start: 20100721, end: 20110901

REACTIONS (2)
  - HEPATIC ENZYME INCREASED [None]
  - UNEVALUABLE EVENT [None]
